FAERS Safety Report 13163551 (Version 2)
Quarter: 2017Q1

REPORT INFORMATION
  Report Type: Spontaneous
  Country: PL (occurrence: PL)
  Receive Date: 20170130
  Receipt Date: 20170323
  Transmission Date: 20170428
  Serious: Yes (Hospitalization, Other)
  Sender: FDA-Public Use
  Company Number: PL-BRISTOL-MYERS SQUIBB COMPANY-BMS-2017-005447

PATIENT
  Age: 70 Year
  Sex: Male

DRUGS (1)
  1. OPDIVO [Suspect]
     Active Substance: NIVOLUMAB
     Indication: MALIGNANT MELANOMA
     Dosage: 3 UNK, UNK
     Route: 042
     Dates: start: 20160908, end: 20170102

REACTIONS (2)
  - Hepatitis [Recovered/Resolved]
  - Dermatomyositis [Recovered/Resolved]

NARRATIVE: CASE EVENT DATE: 20170119
